FAERS Safety Report 5493573-1 (Version None)
Quarter: 2007Q4

REPORT INFORMATION
  Report Type: 
  Country: None (occurrence: None)
  Receive Date: 20071017
  Receipt Date: 20071010
  Transmission Date: 20080405
  Serious: Yes (Other)
  Sender: FDA-Public Use
  Company Number: 2007SP020615

PATIENT
  Sex: Female

DRUGS (1)
  1. CORICIDIN [Suspect]
     Indication: EUPHORIC MOOD
     Dosage: ;PO
     Route: 048

REACTIONS (2)
  - DRUG ABUSE [None]
  - INTENTIONAL DRUG MISUSE [None]
